FAERS Safety Report 25288113 (Version 1)
Quarter: 2025Q2

REPORT INFORMATION
  Report Type: Spontaneous
  Country: US (occurrence: US)
  Receive Date: 20250509
  Receipt Date: 20250509
  Transmission Date: 20250716
  Serious: No
  Sender: ALEXION PHARMACEUTICALS
  Company Number: US-AstraZeneca-CH-00865800AP

PATIENT

DRUGS (1)
  1. BREZTRI [Suspect]
     Active Substance: BUDESONIDE\FORMOTEROL\GLYCOPYRROLATE
     Route: 065

REACTIONS (7)
  - Incorrect dose administered by device [Unknown]
  - Device delivery system issue [Unknown]
  - Muscular weakness [Unknown]
  - Wrong technique in device usage process [Unknown]
  - Device use issue [Unknown]
  - Dyspnoea [Unknown]
  - Poor quality device used [Unknown]
